FAERS Safety Report 10100800 (Version 3)
Quarter: 2014Q3

REPORT INFORMATION
  Report Type: Spontaneous
  Country: ES (occurrence: ES)
  Receive Date: 20140423
  Receipt Date: 20140812
  Transmission Date: 20150326
  Serious: Yes (Hospitalization, Other)
  Sender: FDA-Public Use
  Company Number: ES-KOWA-2014S1000473

PATIENT
  Age: 62 Year
  Sex: Male
  Weight: 84 kg

DRUGS (1)
  1. ALIPZA [Suspect]
     Active Substance: PITAVASTATIN
     Indication: BLOOD CHOLESTEROL INCREASED
     Route: 048
     Dates: start: 201301, end: 201302

REACTIONS (9)
  - Pain in extremity [Recovering/Resolving]
  - Fatigue [Recovering/Resolving]
  - Dyspnoea [Unknown]
  - Muscle atrophy [Recovering/Resolving]
  - Asthenia [Not Recovered/Not Resolved]
  - Eosinophilic fasciitis [Recovering/Resolving]
  - Weight decreased [Recovering/Resolving]
  - Induration [Recovering/Resolving]
  - Cardiac failure [Recovered/Resolved]

NARRATIVE: CASE EVENT DATE: 201302
